FAERS Safety Report 20688096 (Version 5)
Quarter: 2022Q2

REPORT INFORMATION
  Report Type: Spontaneous
  Country: IT (occurrence: IT)
  Receive Date: 20220408
  Receipt Date: 20220512
  Transmission Date: 20220721
  Serious: Yes (Hospitalization)
  Sender: FDA-Public Use
  Company Number: IT-NOVARTISPH-NVSC2022IT076235

PATIENT
  Age: 52 Year
  Sex: Female
  Weight: 65 kg

DRUGS (12)
  1. PACLITAXEL [Suspect]
     Active Substance: PACLITAXEL
     Indication: Breast cancer
     Dosage: 132 MG (LAST DOSE BEFORE SAE01/03/2022)
     Route: 042
     Dates: start: 20211115
  2. PACLITAXEL [Suspect]
     Active Substance: PACLITAXEL
     Indication: Invasive breast carcinoma
     Dosage: 90 MG/M2, LAST DOSE BEFORE SAE 01/03/2022 (132 MG)
     Route: 042
     Dates: start: 20211115, end: 20220308
  3. CARBOPLATIN [Suspect]
     Active Substance: CARBOPLATIN
     Indication: Breast cancer
     Dosage: 180 MG (LAST DOSE BEFORE SAE 01/03/2022)
     Route: 042
     Dates: start: 20211115
  4. TRASTUZUMAB [Suspect]
     Active Substance: TRASTUZUMAB
     Indication: Breast cancer
     Dosage: 384 MG (LAST DOSE BEFORE SAE01/03/2022)
     Route: 041
     Dates: start: 20211115
  5. TRASTUZUMAB [Suspect]
     Active Substance: TRASTUZUMAB
     Indication: Invasive breast carcinoma
     Dosage: 8 MG/KG, LAST DOSE BEFORE SAE 01/03/2022 (384 MG)
     Route: 041
     Dates: start: 20211115, end: 20220301
  6. PERTUZUMAB [Suspect]
     Active Substance: PERTUZUMAB
     Indication: Breast cancer
     Dosage: 420 MG (LAST DOSE BEFORE SAE 01/03/2022)
     Route: 042
     Dates: start: 20211115
  7. PERTUZUMAB [Suspect]
     Active Substance: PERTUZUMAB
     Indication: Invasive breast carcinoma
     Dosage: 840 MG, LAST DOSE BEFORE SAE 01/03/2022 (420 MG)
     Route: 042
     Dates: start: 20211115, end: 20220301
  8. ATEZOLIZUMAB [Suspect]
     Active Substance: ATEZOLIZUMAB
     Indication: Breast cancer
     Dosage: 1200 MG, LAST DOSE BEFORE SAE18/01/2022
     Route: 041
     Dates: start: 20211115, end: 20220118
  9. ATEZOLIZUMAB [Suspect]
     Active Substance: ATEZOLIZUMAB
     Indication: Invasive breast carcinoma
  10. CEFIXIME [Concomitant]
     Active Substance: CEFIXIME
     Indication: Enteritis
     Dosage: UNK
     Route: 065
     Dates: start: 20220311, end: 20220315
  11. CIPROFLOXACIN [Concomitant]
     Active Substance: CIPROFLOXACIN
     Indication: Enteritis
     Dosage: UNK
     Route: 065
     Dates: start: 20220315, end: 20220316
  12. CERNEVIT [Concomitant]
     Active Substance: VITAMINS
     Indication: Enteritis
     Dosage: UNK
     Route: 065
     Dates: start: 20220315, end: 20220315

REACTIONS (2)
  - Immune-mediated enterocolitis [Recovered/Resolved]
  - Enterocolitis infectious [Not Recovered/Not Resolved]

NARRATIVE: CASE EVENT DATE: 20220317
